FAERS Safety Report 17544397 (Version 2)
Quarter: 2020Q2

REPORT INFORMATION
  Report Type: Spontaneous
  Country: CA (occurrence: CA)
  Receive Date: 20200316
  Receipt Date: 20200407
  Transmission Date: 20200713
  Serious: Yes (Other)
  Sender: FDA-Public Use
  Company Number: CA-TEVA-2020-CA-1198399

PATIENT
  Age: 53 Year
  Sex: Female

DRUGS (1)
  1. TEVA PREDNISONE 5 MG [Suspect]
     Active Substance: PREDNISONE
     Indication: ANAPHYLAXIS PROPHYLAXIS
     Dosage: 40 MILLIGRAM DAILY;
     Route: 048
     Dates: start: 20200220, end: 20200221

REACTIONS (4)
  - Adverse drug reaction [Recovering/Resolving]
  - Swelling face [Recovering/Resolving]
  - Hot flush [Recovering/Resolving]
  - Erythema [Recovering/Resolving]

NARRATIVE: CASE EVENT DATE: 20200221
